FAERS Safety Report 23352270 (Version 1)
Quarter: 2023Q4

REPORT INFORMATION
  Report Type: Spontaneous
  Country: US (occurrence: US)
  Receive Date: 20231229
  Receipt Date: 20231229
  Transmission Date: 20240110
  Serious: No
  Sender: FDA-Public Use
  Company Number: US-PFIZER INC-PV202300205330

PATIENT
  Age: 76 Year
  Sex: Female
  Weight: 114.74 kg

DRUGS (3)
  1. IBRANCE [Suspect]
     Active Substance: PALBOCICLIB
     Indication: Breast cancer female
     Dosage: 100 MG, 1 TAB ONCE A DAY X 21 DAYS WITH 7 DAYS OFF
     Route: 048
     Dates: start: 20211012
  2. XGEVA [Concomitant]
     Active Substance: DENOSUMAB
     Indication: Metastases to bone
     Dosage: 120 MG, Q 4 WEEKS
  3. FEMARA [Concomitant]
     Active Substance: LETROZOLE
     Indication: Metastases to bone
     Dosage: 2.5 MG, DAILY

REACTIONS (1)
  - Neoplasm progression [Unknown]

NARRATIVE: CASE EVENT DATE: 20211112
